FAERS Safety Report 25193511 (Version 1)
Quarter: 2025Q2

REPORT INFORMATION
  Report Type: Report from Study
  Country: US (occurrence: US)
  Receive Date: 20250414
  Receipt Date: 20250414
  Transmission Date: 20250716
  Serious: Yes (Other)
  Sender: ALEXION PHARMACEUTICALS
  Company Number: US-AstraZeneca-CH-00844174A

PATIENT
  Age: 62 Year

DRUGS (1)
  1. OLAPARIB [Suspect]
     Active Substance: OLAPARIB
     Indication: Ovarian cancer

REACTIONS (10)
  - Neuropathy peripheral [Unknown]
  - Full blood count abnormal [Unknown]
  - Blood creatinine increased [Unknown]
  - Protein total abnormal [Unknown]
  - Alanine aminotransferase decreased [Unknown]
  - Lymphadenopathy [Unknown]
  - Fatigue [Unknown]
  - Blood iron decreased [Unknown]
  - Epistaxis [Unknown]
  - Abdominal pain lower [Unknown]
